FAERS Safety Report 9403576 (Version 2)
Quarter: 2013Q3

REPORT INFORMATION
  Report Type: Spontaneous
  Country: DE (occurrence: DE)
  Receive Date: 20130717
  Receipt Date: 20130830
  Transmission Date: 20140515
  Serious: Yes (Hospitalization)
  Sender: FDA-Public Use
  Company Number: DE-ROCHE-1247630

PATIENT
  Age: 79 Year
  Sex: Female
  Weight: 78 kg

DRUGS (6)
  1. PERJETA [Suspect]
     Indication: BREAST CANCER METASTATIC
     Route: 042
     Dates: start: 20130626
  2. HERCEPTIN [Suspect]
     Indication: BREAST CANCER METASTATIC
     Route: 042
     Dates: start: 20130530
  3. TAXOTERE [Suspect]
     Indication: BREAST CANCER METASTATIC
     Route: 042
     Dates: start: 20130530
  4. TAXOTERE [Suspect]
     Route: 042
     Dates: start: 20130626
  5. DEXAMETHASONE [Concomitant]
     Indication: PROPHYLAXIS OF NAUSEA AND VOMITING
     Route: 048
     Dates: start: 20130529, end: 20130625
  6. DEXAMETHASONE [Concomitant]
     Route: 042
     Dates: start: 20130530, end: 20130626

REACTIONS (3)
  - Gastric ulcer [Recovering/Resolving]
  - Duodenitis [Recovering/Resolving]
  - Diarrhoea [Recovering/Resolving]
